FAERS Safety Report 8875519 (Version 1)
Quarter: 2012Q4

REPORT INFORMATION
  Report Type: 
  Country: FR (occurrence: FR)
  Receive Date: 20121023
  Receipt Date: 20121023
  Transmission Date: 20130627
  Serious: Yes (Other)
  Sender: FDA-Public Use
  Company Number: PHHY2012FR094457

PATIENT
  Age: 20 Year
  Sex: Female
  Weight: 72 kg

DRUGS (1)
  1. EXJADE [Suspect]
     Indication: HAEMOCHROMATOSIS
     Dosage: 500 mg, daily
     Route: 048
     Dates: start: 200607

REACTIONS (3)
  - Abortion spontaneous [Unknown]
  - Amenorrhoea [Unknown]
  - Exposure during pregnancy [Unknown]
